FAERS Safety Report 8514911-9 (Version None)
Quarter: 2012Q3

REPORT INFORMATION
  Report Type: 
  Country: None (occurrence: None)
  Receive Date: 20120711
  Receipt Date: 20120711
  Transmission Date: 20120928
  Serious: Yes (Hospitalization)
  Sender: FDA-Public Use
  Company Number: None

PATIENT
  Sex: Female

DRUGS (1)
  1. COPAXONE [Suspect]
     Indication: MULTIPLE SCLEROSIS
     Dosage: 20 MG QD SUB-Q } 4 YRS
     Route: 058

REACTIONS (3)
  - ABDOMINAL PAIN [None]
  - VENOUS INJURY [None]
  - MUSCLE SPASMS [None]
